FAERS Safety Report 7300985-X (Version None)
Quarter: 2011Q1

REPORT INFORMATION
  Report Type: 
  Country: None (occurrence: None)
  Receive Date: 20110107
  Receipt Date: 20100208
  Transmission Date: 20110831
  Serious: Yes (Hospitalization)
  Sender: FDA-Public Use
  Company Number: ABX18-09-0539

PATIENT
  Age: 52 Year
  Sex: Female
  Weight: 64.6 kg

DRUGS (14)
  1. GLIPIZIDE [Concomitant]
  2. COUMADIN [Concomitant]
  3. VINORELBINE [Suspect]
     Indication: BREAST CANCER
     Dosage: (45 MG)
     Dates: start: 20090511, end: 20090618
  4. ABRAXANE [Suspect]
     Indication: BREAST CANCER
     Dosage: (468 MG)
     Dates: start: 20090317, end: 20090428
  5. HERCEPTIN [Suspect]
     Indication: BREAST CANCER
     Dosage: (302 MG)
     Dates: start: 20090317, end: 20090511
  6. METFORMIN HCL [Concomitant]
  7. AMBIEN [Concomitant]
  8. FLEETS ENEMA (FLEET ENEMA) [Concomitant]
  9. MIRALAX [Concomitant]
  10. LORTAB (VICODIN) [Concomitant]
  11. PROTONIX [Concomitant]
  12. ULTRAM [Concomitant]
  13. COLACE (DOCUSATE SODIUM) [Concomitant]
  14. PRINZIDE [Concomitant]

REACTIONS (1)
  - CHOLELITHIASIS [None]
